FAERS Safety Report 13937050 (Version 1)
Quarter: 2017Q3

REPORT INFORMATION
  Report Type: Spontaneous
  Country: US (occurrence: US)
  Receive Date: 20170905
  Receipt Date: 20170905
  Transmission Date: 20171127
  Serious: Yes (Life-Threatening, Hospitalization)
  Sender: FDA-Public Use
  Company Number: US-EPIC PHARMA LLC-2017EPC01921

PATIENT
  Age: 30 Year
  Sex: Male

DRUGS (1)
  1. AMLODIPINE [Suspect]
     Active Substance: AMLODIPINE BESYLATE
     Dosage: 10 MG, ONCE (20 TABLETS)
     Route: 048

REACTIONS (3)
  - Overdose [Unknown]
  - Non-cardiogenic pulmonary oedema [Unknown]
  - Acute respiratory failure [Unknown]
